FAERS Safety Report 12853077 (Version 1)
Quarter: 2016Q4

REPORT INFORMATION
  Report Type: Spontaneous
  Country: US (occurrence: US)
  Receive Date: 20161017
  Receipt Date: 20161017
  Transmission Date: 20170207
  Serious: No
  Sender: FDA-Public Use
  Company Number: US-JAZZ-2016-US-014061

PATIENT
  Age: 54 Year
  Sex: Female

DRUGS (14)
  1. XYREM [Suspect]
     Active Substance: SODIUM OXYBATE
     Indication: CATAPLEXY
  2. REQUIP XL [Concomitant]
     Active Substance: ROPINIROLE HYDROCHLORIDE
  3. XYREM [Suspect]
     Active Substance: SODIUM OXYBATE
     Indication: NARCOLEPSY
     Dosage: 2.25 G, BID
     Route: 048
     Dates: start: 20160722
  4. FERROUS SULFATE EC [Concomitant]
  5. NUVIGIL [Concomitant]
     Active Substance: ARMODAFINIL
  6. ANAPROX [Concomitant]
     Active Substance: NAPROXEN SODIUM
  7. GABAPENTIN. [Concomitant]
     Active Substance: GABAPENTIN
  8. SENNA-DOCUSATE SODIUM [Concomitant]
  9. TOPAMAX [Concomitant]
     Active Substance: TOPIRAMATE
  10. ZOLOFT [Concomitant]
     Active Substance: SERTRALINE HYDROCHLORIDE
  11. HUMIRA [Concomitant]
     Active Substance: ADALIMUMAB
  12. COMPAZINE [Concomitant]
     Active Substance: PROCHLORPERAZINE MALEATE
  13. BOTOX [Concomitant]
     Active Substance: ONABOTULINUMTOXINA
  14. ULTRAM ER [Concomitant]
     Active Substance: TRAMADOL HYDROCHLORIDE

REACTIONS (3)
  - Headache [Not Recovered/Not Resolved]
  - Nausea [Recovering/Resolving]
  - Decreased appetite [Not Recovered/Not Resolved]

NARRATIVE: CASE EVENT DATE: 201607
